FAERS Safety Report 26189499 (Version 1)
Quarter: 2025Q4

REPORT INFORMATION
  Report Type: Spontaneous
  Country: CN (occurrence: CN)
  Receive Date: 20251223
  Receipt Date: 20251223
  Transmission Date: 20260118
  Serious: Yes (Other)
  Sender: CHEPLAPHARM
  Company Number: CN-CHEPLA-2025014313

PATIENT
  Age: 38 Year
  Sex: Female
  Weight: 60 kg

DRUGS (2)
  1. OLANZAPINE [Suspect]
     Active Substance: OLANZAPINE
     Indication: Mental disorder
     Dosage: DAILY DOSE: 5 MILLIGRAM
     Route: 048
     Dates: start: 20251105, end: 20251110
  2. OLANZAPINE [Suspect]
     Active Substance: OLANZAPINE
     Indication: Mental disorder
     Dosage: ORAL DISSOLVING FILM, EVERY NIGHT?DAILY DOSE: 5 MILLIGRAM
     Route: 048
     Dates: start: 20251110, end: 20251217

REACTIONS (2)
  - Condition aggravated [Recovering/Resolving]
  - Blood prolactin increased [Recovering/Resolving]

NARRATIVE: CASE EVENT DATE: 20251110
